FAERS Safety Report 8318263-9 (Version None)
Quarter: 2012Q2

REPORT INFORMATION
  Report Type: 
  Country: None (occurrence: None)
  Receive Date: 20120427
  Receipt Date: 20120419
  Transmission Date: 20120825
  Serious: Yes (Hospitalization)
  Sender: FDA-Public Use
  Company Number: IT-ABBOTT-12P-083-0920406-00

PATIENT
  Sex: Female
  Weight: 52 kg

DRUGS (3)
  1. HUMIRA [Suspect]
     Route: 058
     Dates: end: 20111007
  2. HUMIRA [Suspect]
     Indication: CROHN'S DISEASE
     Dosage: INDUCTION
     Route: 058
     Dates: start: 20081118, end: 20081118
  3. HUMIRA [Suspect]
     Route: 058

REACTIONS (1)
  - INTESTINAL OBSTRUCTION [None]
